FAERS Safety Report 9010320 (Version 2)
Quarter: 2013Q1

REPORT INFORMATION
  Report Type: Spontaneous
  Country: US (occurrence: US)
  Receive Date: 20130110
  Receipt Date: 20130201
  Transmission Date: 20140127
  Serious: Yes (Hospitalization, Other)
  Sender: FDA-Public Use
  Company Number: US-PFIZER INC-2013009622

PATIENT
  Age: 62 Year
  Sex: Male

DRUGS (2)
  1. SUTENT [Suspect]
     Indication: RENAL CELL CARCINOMA
     Dosage: 50 MG, 4 WEEKS ON, 2 OFF
     Route: 048
     Dates: start: 20120107, end: 20130105
  2. BYETTA [Suspect]
     Dosage: UNK
     Dates: end: 20130105

REACTIONS (4)
  - Pancreatitis [Unknown]
  - Abdominal pain [Unknown]
  - Diverticulitis [Unknown]
  - Lipase increased [Unknown]
